FAERS Safety Report 9486789 (Version 1)
Quarter: 2013Q3

REPORT INFORMATION
  Report Type: Report from Study
  Country: US (occurrence: US)
  Receive Date: 20130829
  Receipt Date: 20130829
  Transmission Date: 20140515
  Serious: Yes (Hospitalization)
  Sender: FDA-Public Use
  Company Number: US-ABBOTT-13P-163-1138409-00

PATIENT
  Age: 63 Year
  Sex: Female

DRUGS (2)
  1. HUMIRA [Suspect]
     Indication: CROHN^S DISEASE
     Route: 058
     Dates: start: 20130323, end: 20130808
  2. TRAMADOL [Concomitant]
     Indication: BACK PAIN
     Dosage: AS NEEDED
     Route: 048

REACTIONS (4)
  - Pleurisy [Recovering/Resolving]
  - Dyspnoea [Recovering/Resolving]
  - Painful respiration [Recovering/Resolving]
  - Pneumonia [Recovering/Resolving]
